FAERS Safety Report 21246326 (Version 1)
Quarter: 2022Q3

REPORT INFORMATION
  Report Type: Spontaneous
  Country: US (occurrence: None)
  Receive Date: 20220824
  Receipt Date: 20220824
  Transmission Date: 20221026
  Serious: No
  Sender: FDA-Public Use
  Company Number: US-Emmaus Medical, Inc.-EMM202110-000190

PATIENT
  Sex: Female
  Weight: 62.14 kg

DRUGS (3)
  1. ENDARI [Suspect]
     Active Substance: GLUTAMINE
     Indication: Sickle cell disease
     Route: 048
     Dates: start: 20210419
  2. FOLIC ACID [Concomitant]
     Active Substance: FOLIC ACID
  3. CYMBALTA [Concomitant]
     Active Substance: DULOXETINE HYDROCHLORIDE
     Indication: Arthritis

REACTIONS (1)
  - Product dose omission issue [Unknown]
